FAERS Safety Report 10153894 (Version 1)
Quarter: 2014Q2

REPORT INFORMATION
  Report Type: Report from Study
  Country: US (occurrence: US)
  Receive Date: 20140506
  Receipt Date: 20140506
  Transmission Date: 20141212
  Serious: Yes (Other)
  Sender: FDA-Public Use
  Company Number: US-ROCHE-1395019

PATIENT
  Age: 15 Year
  Sex: Male
  Weight: 61.8 kg

DRUGS (1)
  1. NUTROPIN AQ [Suspect]
     Indication: GROWTH HORMONE DEFICIENCY
     Route: 058
     Dates: start: 20040920

REACTIONS (2)
  - Ankle fracture [Unknown]
  - Drug dose omission [Unknown]
